FAERS Safety Report 9094541 (Version 4)
Quarter: 2013Q4

REPORT INFORMATION
  Report Type: Spontaneous
  Country: US (occurrence: US)
  Receive Date: 20130204
  Receipt Date: 20131114
  Transmission Date: 20140711
  Serious: Yes (Other)
  Sender: FDA-Public Use
  Company Number: US-BAYER-2013-013534

PATIENT
  Age: 32 Year
  Sex: Female
  Weight: 76.19 kg

DRUGS (2)
  1. MIRENA [Suspect]
     Indication: CONTRACEPTION
     Dosage: 20 MCG/24HR, CONT
     Route: 015
     Dates: start: 20111121
  2. SYNTHROID [Concomitant]
     Dosage: 50 MCG, QD
     Route: 048

REACTIONS (5)
  - Device dislocation [None]
  - Device dislocation [None]
  - Pregnancy with contraceptive device [Recovered/Resolved]
  - Pelvic pain [None]
  - Drug ineffective [None]
